FAERS Safety Report 5811438-X (Version None)
Quarter: 2008Q3

REPORT INFORMATION
  Report Type: 
  Country: None (occurrence: None)
  Receive Date: 20080716
  Receipt Date: 20080702
  Transmission Date: 20090109
  Serious: Yes (Other)
  Sender: FDA-Public Use
  Company Number: US-BAYER-200821983GPV

PATIENT

DRUGS (7)
  1. CAMPATH [Suspect]
     Indication: IMMUNOSUPPRESSION
     Dosage: TOTAL DAILY DOSE: 30 MG
     Route: 042
  2. TACROLIMUS [Concomitant]
     Indication: IMMUNOSUPPRESSION
     Route: 065
  3. PREDNISONE TAB [Concomitant]
     Indication: IMMUNOSUPPRESSION
     Dosage: TOTAL DAILY DOSE: 5 MG
     Route: 065
  4. MYCOPHENOLATE MOFETIL [Concomitant]
     Indication: IMMUNOSUPPRESSION
     Dosage: TOTAL DAILY DOSE: 500 MG
     Route: 065
  5. VALGANCICLOVIR HCL [Concomitant]
     Indication: ANTIVIRAL PROPHYLAXIS
     Dosage: TOTAL DAILY DOSE: 900 MG
     Route: 065
  6. VORICONAZOLE [Concomitant]
     Indication: INFECTION PROPHYLAXIS
     Dosage: TOTAL DAILY DOSE: 400 MG
     Route: 065
  7. TRIMETHOPRIM + SULFAMETHOXAZOLE [Concomitant]
     Indication: INFECTION PROPHYLAXIS
     Route: 065

REACTIONS (4)
  - BRONCHITIS [None]
  - CANDIDIASIS [None]
  - PNEUMONIA [None]
  - THROMBOCYTOPENIA [None]
